FAERS Safety Report 4271355-6 (Version None)
Quarter: 2004Q1

REPORT INFORMATION
  Report Type: 
  Country: None (occurrence: None)
  Receive Date: 20040115
  Receipt Date: 20031205
  Transmission Date: 20041129
  Serious: Yes (Other)
  Sender: FDA-Public Use
  Company Number: 200311470JP

PATIENT
  Age: 55 Year
  Sex: Female

DRUGS (6)
  1. ARAVA [Suspect]
     Indication: RHEUMATOID ARTHRITIS
     Route: 048
     Dates: start: 20031114, end: 20031204
  2. CLINORIL [Concomitant]
     Indication: INFLAMMATION
     Dosage: DOSE: 3T
     Route: 048
  3. CLINORIL [Concomitant]
     Indication: PAIN
     Dosage: DOSE: 3T
     Route: 048
  4. TAGAMET [Concomitant]
     Indication: GASTROINTESTINAL DISORDER
     Dosage: DOSE: 2T
     Route: 048
  5. FERROMIA [Concomitant]
     Indication: ANAEMIA
     Route: 048
  6. ONE-ALPHA [Concomitant]
     Indication: OSTEOPOROSIS
     Route: 048

REACTIONS (11)
  - ABDOMINAL DISTENSION [None]
  - ABDOMINAL PAIN [None]
  - ALANINE AMINOTRANSFERASE INCREASED [None]
  - ASPARTATE AMINOTRANSFERASE INCREASED [None]
  - BLOOD ALKALINE PHOSPHATASE INCREASED [None]
  - BLOOD BILIRUBIN INCREASED [None]
  - BLOOD LACTATE DEHYDROGENASE INCREASED [None]
  - DIARRHOEA [None]
  - GAMMA-GLUTAMYLTRANSFERASE INCREASED [None]
  - PLATELET COUNT DECREASED [None]
  - WHITE BLOOD CELL COUNT DECREASED [None]
